FAERS Safety Report 20682337 (Version 2)
Quarter: 2022Q3

REPORT INFORMATION
  Report Type: Spontaneous
  Country: US (occurrence: US)
  Receive Date: 20220407
  Receipt Date: 20220906
  Transmission Date: 20221026
  Serious: No
  Sender: FDA-Public Use
  Company Number: US-MTPC-MTDA2022-0008642

PATIENT
  Sex: Female

DRUGS (1)
  1. RADICAVA [Suspect]
     Active Substance: EDARAVONE
     Indication: Product used for unknown indication
     Dosage: 230 MILLIGRAM
     Route: 065
     Dates: start: 202201

REACTIONS (4)
  - Aphonia [Unknown]
  - Speech disorder [Unknown]
  - Aphasia [Unknown]
  - Incorrect dose administered [Unknown]
